FAERS Safety Report 9071404 (Version 1)
Quarter: 2013Q1

REPORT INFORMATION
  Report Type: Spontaneous
  Country: US (occurrence: US)
  Receive Date: 20130206
  Receipt Date: 20130206
  Transmission Date: 20140127
  Serious: No
  Sender: FDA-Public Use
  Company Number: US-ALLERGAN-1211175US

PATIENT
  Sex: Female

DRUGS (2)
  1. RESTASIS? [Suspect]
     Indication: DRY EYE
     Dosage: 2 GTT, UNK
     Route: 047
     Dates: start: 20120606, end: 20120706
  2. REFRESH OPTIVE [Concomitant]
     Indication: DRY EYE
     Route: 047

REACTIONS (4)
  - Pruritus [Recovering/Resolving]
  - Pain of skin [Not Recovered/Not Resolved]
  - Incorrect storage of drug [Unknown]
  - Eye irritation [Recovered/Resolved]
